FAERS Safety Report 10255573 (Version 2)
Quarter: 2014Q2

REPORT INFORMATION
  Report Type: Spontaneous
  Country: IT (occurrence: None)
  Receive Date: 20140620
  Receipt Date: 20140624
  Transmission Date: 20141212
  Serious: Yes (Hospitalization)
  Sender: FDA-Public Use
  Company Number: AUR-APL-2014-06488

PATIENT
  Age: 68 Year
  Sex: Female

DRUGS (7)
  1. METFORMIN [Suspect]
     Indication: DIABETES MELLITUS
     Route: 048
     Dates: start: 20060101, end: 20140529
  2. NOVONORM [Suspect]
     Indication: DIABETES MELLITUS
     Route: 048
     Dates: start: 20110101, end: 20140528
  3. ENAPREN (ENALAPRIL MALEATE) [Concomitant]
  4. LEXOTAN (PBOMAZEPAM) [Concomitant]
  5. CARDIOASPIRIN (ACETYLSALICYLIC ACID) GASTRO-RESISTANT TABLET [Concomitant]
  6. SEROQUEL (QUETIAPINE FUMARATE) FILM-COATED TABLET [Concomitant]
  7. FLUVOXAMINE MALEATE [Concomitant]

REACTIONS (3)
  - Bradyphrenia [None]
  - Bradykinesia [None]
  - Hypoglycaemia [None]
